FAERS Safety Report 25383469 (Version 2)
Quarter: 2025Q2

REPORT INFORMATION
  Report Type: Spontaneous
  Country: US (occurrence: US)
  Receive Date: 20250602
  Receipt Date: 20250610
  Transmission Date: 20250717
  Serious: Yes (Life-Threatening, Hospitalization, Other)
  Sender: ALKEM
  Company Number: US-ALKEM LABORATORIES LIMITED-US-ALKEM-2025-05358

PATIENT
  Age: 13 Year
  Sex: Female

DRUGS (5)
  1. METFORMIN HYDROCHLORIDE [Suspect]
     Active Substance: METFORMIN HYDROCHLORIDE
     Indication: Product used for unknown indication
     Route: 048
  2. ENALAPRIL [Suspect]
     Active Substance: ENALAPRIL
     Indication: Coronary artery dilatation
     Route: 065
  3. ASPIRIN [Suspect]
     Active Substance: ASPIRIN
     Indication: Coronary artery dilatation
     Route: 065
  4. ASPIRIN [Suspect]
     Active Substance: ASPIRIN
     Route: 065
  5. SERTRALINE [Concomitant]
     Active Substance: SERTRALINE HYDROCHLORIDE
     Indication: Product used for unknown indication
     Route: 065

REACTIONS (31)
  - Cardiac dysfunction [Recovered/Resolved]
  - Acute kidney injury [Unknown]
  - Metabolic disorder [Unknown]
  - Multiple organ dysfunction syndrome [Unknown]
  - Sinus tachycardia [Unknown]
  - Electrocardiogram QT prolonged [Unknown]
  - Abdominal tenderness [Unknown]
  - Tachypnoea [Unknown]
  - Mental status changes [Unknown]
  - Troponin increased [Unknown]
  - Brain natriuretic peptide increased [Unknown]
  - Ischaemia [Unknown]
  - Aspartate aminotransferase increased [Unknown]
  - Alanine aminotransferase increased [Unknown]
  - Cardiomyopathy [Unknown]
  - Lipase increased [Recovering/Resolving]
  - Coronary artery dilatation [Unknown]
  - Suicide attempt [Unknown]
  - Pancreatitis [Recovering/Resolving]
  - Hypotension [Unknown]
  - Liver function test increased [Unknown]
  - Metabolic acidosis [Unknown]
  - Hyperlactacidaemia [Unknown]
  - Acidosis [Unknown]
  - Nausea [Unknown]
  - Vomiting [Unknown]
  - Abdominal pain [Unknown]
  - Hypothermia [Unknown]
  - Overdose [Unknown]
  - Toxicity to various agents [Unknown]
  - Product administration error [Unknown]
